FAERS Safety Report 4533709-X (Version None)
Quarter: 2004Q4

REPORT INFORMATION
  Report Type: 
  Country: None (occurrence: None)
  Receive Date: 20041221
  Receipt Date: 20010807
  Transmission Date: 20050328
  Serious: No
  Sender: FDA-Public Use
  Company Number: JP-GLAXOSMITHKLINE-B0252993A

PATIENT
  Age: 63 Year
  Sex: Female

DRUGS (3)
  1. AMOXICILLIN [Suspect]
     Indication: HELICOBACTER INFECTION
     Dosage: 1500MG PER DAY
     Route: 048
     Dates: start: 20010719, end: 20010720
  2. CLARITHROMYCIN [Suspect]
     Indication: DRUG USE FOR UNKNOWN INDICATION
     Dosage: 400MG PER DAY
     Route: 048
     Dates: start: 20010719, end: 20040720
  3. LANSOPRAZOLE [Suspect]
     Dosage: 60MG PER DAY
     Route: 048
     Dates: start: 20010719, end: 20010720

REACTIONS (4)
  - FACE OEDEMA [None]
  - HOT FLUSH [None]
  - PHARYNGOLARYNGEAL PAIN [None]
  - RASH [None]
